FAERS Safety Report 8612375-8 (Version None)
Quarter: 2012Q3

REPORT INFORMATION
  Report Type: 
  Country: None (occurrence: None)
  Receive Date: 20120822
  Receipt Date: 20120814
  Transmission Date: 20120928
  Serious: Yes (Hospitalization)
  Sender: FDA-Public Use
  Company Number: PHHY2012IT071422

PATIENT
  Sex: Male

DRUGS (3)
  1. LEVOFLOXACIN [Suspect]
     Indication: HELICOBACTER INFECTION
     Dosage: 2 DF DAILY
     Route: 048
     Dates: start: 20110611, end: 20120617
  2. CLARITHROMYCIN [Suspect]
     Indication: HELICOBACTER INFECTION
     Dosage: 2 DF PER DAY
     Route: 048
     Dates: start: 20120611, end: 20120617
  3. RABEPRAZOLE SODIUM [Suspect]
     Indication: HELICOBACTER INFECTION
     Dosage: 2 DF
     Route: 048
     Dates: start: 20120611, end: 20120617

REACTIONS (4)
  - OEDEMA PERIPHERAL [None]
  - CHEST DISCOMFORT [None]
  - FACE OEDEMA [None]
  - MALAISE [None]
